FAERS Safety Report 9282606 (Version 2)
Quarter: 2013Q2

REPORT INFORMATION
  Report Type: Spontaneous
  Country: US (occurrence: None)
  Receive Date: 20101215
  Receipt Date: 20130419
  Transmission Date: 20140414
  Serious: Yes (Life-Threatening)
  Sender: FDA-Public Use
  Company Number: 54973 RSAE120210EF001

PATIENT
  Age: 14 Month
  Sex: Female
  Weight: 8.62 kg

DRUGS (2)
  1. HYLAND^S TEETHING TABLETS [Suspect]
     Indication: TEETHING
     Dosage: 3  TABS  QID  WHEN  TEETHING
  2. HYLAND^S TEETHING TABLETS [Suspect]
     Dosage: 3  TABS  QID  WHEN  TEETHING

REACTIONS (11)
  - Dysuria [None]
  - Screaming [None]
  - Dry skin [None]
  - Erythema [None]
  - Agitation [None]
  - Muscular weakness [None]
  - Aggression [None]
  - Convulsion [None]
  - Product quality issue [None]
  - Pyrexia [None]
  - Gastrooesophageal reflux disease [None]
